FAERS Safety Report 8832435 (Version 1)
Quarter: 2012Q4

REPORT INFORMATION
  Report Type: Spontaneous
  Country: FR (occurrence: None)
  Receive Date: 20121005
  Receipt Date: 20121005
  Transmission Date: 20130627
  Serious: Yes (Hospitalization)
  Sender: FDA-Public Use
  Company Number: IMP_06010_2012

PATIENT
  Age: 46 Year
  Sex: Male

DRUGS (3)
  1. BACLOFEN [Suspect]
     Indication: ALCOHOLISM
  2. DIAZEPAM [Concomitant]
     Dosage: 15 mg QD, increased by 15 mg/ day each week), (240 mg QD, slowly reduced to 100 mg per day, (100 mg per day)
  3. DAILY VITAMINS [Concomitant]

REACTIONS (1)
  - Grand mal convulsion [None]
